FAERS Safety Report 6364015-9 (Version None)
Quarter: 2009Q3

REPORT INFORMATION
  Report Type: 
  Country: None (occurrence: None)
  Receive Date: 20090919
  Receipt Date: 20090714
  Transmission Date: 20100115
  Serious: No
  Sender: FDA-Public Use
  Company Number: US-ABBOTT-09P-163-0585747-00

PATIENT
  Sex: Male
  Weight: 45.854 kg

DRUGS (9)
  1. HUMIRA [Suspect]
     Indication: CROHN'S DISEASE
     Route: 058
     Dates: start: 20090630, end: 20090630
  2. HUMIRA [Suspect]
     Route: 058
     Dates: start: 20090714
  3. NEURONTIN [Concomitant]
     Indication: DRUG USE FOR UNKNOWN INDICATION
  4. CYMBALTA [Concomitant]
     Indication: DRUG USE FOR UNKNOWN INDICATION
  5. POTASSIUM CHLORIDE [Concomitant]
     Indication: DRUG USE FOR UNKNOWN INDICATION
  6. FORTEO [Concomitant]
     Indication: DRUG USE FOR UNKNOWN INDICATION
     Route: 050
  7. TYLENOL W/ CODEINE NO. 3 [Concomitant]
     Indication: DRUG USE FOR UNKNOWN INDICATION
  8. M.V.I. [Concomitant]
     Indication: DRUG USE FOR UNKNOWN INDICATION
  9. VIT B12 [Concomitant]
     Indication: DRUG USE FOR UNKNOWN INDICATION
     Route: 050

REACTIONS (2)
  - DYSARTHRIA [None]
  - GAIT DISTURBANCE [None]
